FAERS Safety Report 18331421 (Version 2)
Quarter: 2020Q4

REPORT INFORMATION
  Report Type: Spontaneous
  Country: DE (occurrence: DE)
  Receive Date: 20200930
  Receipt Date: 20201215
  Transmission Date: 20210113
  Serious: Yes (Hospitalization)
  Sender: FDA-Public Use
  Company Number: DE-MYLANLABS-2020M1082400

PATIENT
  Sex: Male

DRUGS (21)
  1. NOVAMINSULFON [Concomitant]
     Active Substance: METAMIZOLE
     Dosage: 500 MILLIGRAM ^1XD^
     Route: 048
     Dates: start: 20181010, end: 20181011
  2. ATORVASTATIN [Concomitant]
     Active Substance: ATORVASTATIN
     Indication: HYPERCHOLESTEROLAEMIA
     Dosage: 20 MILLIGRAM, QD FOR 31 DAY(S)
     Route: 048
     Dates: start: 20181006, end: 20181105
  3. SMOFKABIVEN [Concomitant]
     Active Substance: AMINO ACIDS\DEXTROSE\ELECTROLYTES NOS\SOYBEAN OIL
     Dosage: 986 MILLILITER, QD (0-0-0-1)
     Route: 042
     Dates: start: 20181006, end: 20181009
  4. METAMIZOL NATRIUM [Concomitant]
     Active Substance: METAMIZOLE SODIUM
     Indication: PYREXIA
     Dosage: 500 MILLIGRAM, QD FOR 32 DAY(S)
     Route: 048
     Dates: start: 20181006, end: 20181106
  5. ENOXAPARIN SODIUM. [Concomitant]
     Active Substance: ENOXAPARIN SODIUM
     Indication: EMBOLISM
     Dosage: 100MG/ML, 0.7 ML
     Route: 058
     Dates: start: 20181006
  6. PANTOPRAZOLE [Concomitant]
     Active Substance: PANTOPRAZOLE
     Indication: PROPHYLAXIS AGAINST GASTROINTESTINAL ULCER
     Dosage: 40 MILLIGRAM, BID FOR 7 DAY(S)
     Route: 048
     Dates: start: 20181006, end: 20181012
  7. PARACETAMOL [Concomitant]
     Active Substance: ACETAMINOPHEN
     Indication: PYREXIA
     Dosage: 500 MILLIGRAM, BID FOR 1 DAY
     Route: 048
     Dates: start: 20181009, end: 20181009
  8. RANITIDINE. [Concomitant]
     Active Substance: RANITIDINE
     Indication: SUPPORTIVE CARE
     Dosage: 5 MILLILITER, QD FOR 1 DAY
     Route: 042
     Dates: start: 20181009, end: 20181009
  9. MESNA. [Concomitant]
     Active Substance: MESNA
     Indication: SUPPORTIVE CARE
     Dosage: 400 MILLIGRAM, QD FOR 1 DAY
     Route: 042
     Dates: start: 20181010, end: 20181010
  10. LEVOTHYROXINE SODIUM. [Concomitant]
     Active Substance: LEVOTHYROXINE SODIUM
     Indication: HYPERTHYROIDISM
     Dosage: 25 MICROGRAM, QD
     Route: 048
     Dates: start: 20181006, end: 20181006
  11. RITUXIMAB. [Suspect]
     Active Substance: RITUXIMAB
     Indication: B-CELL LYMPHOMA
     Dosage: 375 MILLIGRAM/SQ. METER, 1X FOR 36 DAY(S)
     Route: 042
     Dates: start: 20180918, end: 20181023
  12. GRANISETRON [Concomitant]
     Active Substance: GRANISETRON
     Indication: NAUSEA
     Dosage: 3 MILLIGRAM, QD FOR 2 DAYS
     Route: 042
     Dates: start: 20181010, end: 20181011
  13. PEGFILGRASTIM [Suspect]
     Active Substance: PEGFILGRASTIM
     Indication: B-CELL LYMPHOMA
     Dosage: 6 MILLIGRAM, 1 XFOR 36 DAY(S)
     Route: 058
     Dates: start: 20180923, end: 20181028
  14. PREDNISOLONE. [Suspect]
     Active Substance: PREDNISOLONE
     Indication: B-CELL LYMPHOMA
     Dosage: 100 MILLIGRAM, 5X FOR 47 DAY(S) AND 100 MILLIGRAM QD FOR 2 DAYS
     Route: 048
     Dates: start: 20180913, end: 20181029
  15. CYCLOPHOSPHAMIDE. [Suspect]
     Active Substance: CYCLOPHOSPHAMIDE
     Indication: B-CELL LYMPHOMA
     Dosage: 750 MILLIGRAM, 1X FOR 36 DAY(S)
     Route: 042
     Dates: start: 20180920, end: 20181025
  16. VINCRISTINE SULFATE. [Suspect]
     Active Substance: VINCRISTINE SULFATE
     Indication: B-CELL LYMPHOMA
     Dosage: 3.21MILLIGRAM/3.01 MILLIGRAM, 3X FOR 36 DAY(S)
     Route: 042
     Dates: start: 20180920, end: 20181025
  17. TRIMETHOPRIM SULFAMETHOXAZOLE [Concomitant]
     Active Substance: SULFAMETHOXAZOLE\TRIMETHOPRIM
     Indication: INFECTION
     Dosage: 960 MILLIGRAM, QD, FOR 5 DAY(S)
     Route: 048
     Dates: start: 20181008, end: 20181012
  18. DOXORUBICIN [Suspect]
     Active Substance: DOXORUBICIN
     Indication: B-CELL LYMPHOMA
     Dosage: 50 MILLIGRAM, 1X FOR 36 DAY(S)
     Route: 042
     Dates: start: 20180918, end: 20181023
  19. DEXAMETHASONE. [Concomitant]
     Active Substance: DEXAMETHASONE
     Indication: PROPHYLAXIS
     Dosage: 8 MILLIGRAM, QD FOR 1 DAY
     Route: 042
     Dates: start: 20181011, end: 20181011
  20. CLEMASTIN [Concomitant]
     Active Substance: CLEMASTINE
     Indication: SUPPORTIVE CARE
     Dosage: 2 MILLILITER, QD FOR 2 DAY(S)
     Route: 042
     Dates: start: 20181009, end: 20181010
  21. VALGANCICLOVIR. [Concomitant]
     Active Substance: VALGANCICLOVIR
     Indication: CYTOMEGALOVIRUS INFECTION
     Dosage: 450 MILLIGRAM, QID FOR 6 DAYS
     Route: 048
     Dates: start: 20181006, end: 20181011

REACTIONS (1)
  - Pyrexia [Recovered/Resolved]

NARRATIVE: CASE EVENT DATE: 20181105
